FAERS Safety Report 20356531 (Version 1)
Quarter: 2022Q1

REPORT INFORMATION
  Report Type: Spontaneous
  Country: US (occurrence: US)
  Receive Date: 20220120
  Receipt Date: 20220120
  Transmission Date: 20220423
  Serious: No
  Sender: FDA-Public Use
  Company Number: US-BEH-2022140849

PATIENT
  Age: 35 Year
  Sex: Female

DRUGS (1)
  1. PRIVIGEN [Suspect]
     Active Substance: HUMAN IMMUNOGLOBULIN G
     Indication: Chronic inflammatory demyelinating polyradiculoneuropathy
     Dosage: 35 GRAM, QD  ( DAILY)
     Route: 042

REACTIONS (2)
  - Rash [Unknown]
  - Recalled product administered [Unknown]

NARRATIVE: CASE EVENT DATE: 20220110
